FAERS Safety Report 25741886 (Version 1)
Quarter: 2025Q3

REPORT INFORMATION
  Report Type: Spontaneous
  Country: US (occurrence: US)
  Receive Date: 20250829
  Receipt Date: 20250829
  Transmission Date: 20251020
  Serious: No
  Sender: DR REDDYS
  Company Number: None

PATIENT
  Age: 83 Year
  Sex: Female

DRUGS (5)
  1. CYCLOPHOSPHAMIDE [Suspect]
     Active Substance: CYCLOPHOSPHAMIDE
     Indication: Primary cardiac lymphoma
  2. DOXORUBICIN [Suspect]
     Active Substance: DOXORUBICIN
     Indication: Primary cardiac lymphoma
  3. RITUXIMAB [Suspect]
     Active Substance: RITUXIMAB
     Indication: Primary cardiac lymphoma
  4. VINCRISTINE [Suspect]
     Active Substance: VINCRISTINE
     Indication: Primary cardiac lymphoma
  5. PREDNISONE [Suspect]
     Active Substance: PREDNISONE
     Indication: Primary cardiac lymphoma

REACTIONS (3)
  - Pyrexia [Unknown]
  - Hypophagia [Unknown]
  - Bradycardia [Unknown]
